FAERS Safety Report 12837053 (Version 1)
Quarter: 2016Q4

REPORT INFORMATION
  Report Type: Spontaneous
  Country: US (occurrence: US)
  Receive Date: 20161011
  Receipt Date: 20161011
  Transmission Date: 20170207
  Serious: Yes (Hospitalization)
  Sender: FDA-Public Use
  Company Number: US-BAUSCH-BL-2016-024580

PATIENT
  Age: 21 Year
  Sex: Female

DRUGS (1)
  1. BUPROPION XL [Suspect]
     Active Substance: BUPROPION
     Indication: SUICIDE ATTEMPT
     Route: 048

REACTIONS (9)
  - Lactic acidosis [Recovered/Resolved]
  - Hyperreflexia [Recovered/Resolved]
  - Suicide attempt [Unknown]
  - Generalised tonic-clonic seizure [Recovered/Resolved]
  - Overdose [Unknown]
  - Encephalopathy [Recovered/Resolved]
  - Transaminases increased [Recovered/Resolved]
  - Cardiac disorder [Recovered/Resolved]
  - Hypotension [Recovered/Resolved]
